FAERS Safety Report 14527079 (Version 1)
Quarter: 2018Q1

REPORT INFORMATION
  Report Type: Spontaneous
  Country: US (occurrence: US)
  Receive Date: 20180212
  Receipt Date: 20180212
  Transmission Date: 20180509
  Serious: No
  Sender: FDA-Public Use
  Company Number: None

PATIENT
  Age: 74 Year
  Sex: Female
  Weight: 46.35 kg

DRUGS (4)
  1. SEROQUEL [Concomitant]
     Active Substance: QUETIAPINE FUMARATE
  2. MAGNESIUM [Concomitant]
     Active Substance: MAGNESIUM
  3. ALENDRONATE SODIUM TABLETS USP 70 MG [Suspect]
     Active Substance: ALENDRONATE SODIUM
     Indication: BONE DENSITY DECREASED
     Dosage: ?          QUANTITY:12 TABLET(S);OTHER FREQUENCY:ONCE A WEEK;?
     Route: 048
     Dates: start: 20180204, end: 20180204
  4. ALENDRONATE SODIUM TABLETS USP 70 MG [Suspect]
     Active Substance: ALENDRONATE SODIUM
     Indication: OSTEOPOROSIS
     Dosage: ?          QUANTITY:12 TABLET(S);OTHER FREQUENCY:ONCE A WEEK;?
     Route: 048
     Dates: start: 20180204, end: 20180204

REACTIONS (4)
  - Eating disorder [None]
  - Oesophageal pain [None]
  - Insomnia [None]
  - Abdominal pain [None]

NARRATIVE: CASE EVENT DATE: 20180206
